FAERS Safety Report 8610497-9 (Version None)
Quarter: 2012Q3

REPORT INFORMATION
  Report Type: 
  Country: None (occurrence: None)
  Receive Date: 20120822
  Receipt Date: 20120816
  Transmission Date: 20120928
  Serious: No
  Sender: FDA-Public Use
  Company Number: US-PFIZER INC-2012201132

PATIENT
  Age: 86 Year
  Sex: Female
  Weight: 69 kg

DRUGS (7)
  1. ADVIL [Suspect]
     Dosage: 600 MG (THREE CAPSULES OF 200MG), AS NEEDED
     Route: 048
     Dates: start: 20120101
  2. AMBIEN [Suspect]
     Indication: INSOMNIA
     Dosage: 10 MG, DAILY
     Dates: start: 20120812, end: 20120815
  3. COZAAR [Concomitant]
     Indication: HYPERTENSION
     Dosage: UNK, 2X/DAY
  4. ADVIL [Suspect]
     Indication: ARTHRALGIA
     Dosage: UNK, AS NEEDED
     Route: 048
     Dates: end: 20120101
  5. SYNTHROID [Concomitant]
     Indication: THYROID DISORDER
     Dosage: UNK, DAILY
  6. CLONIDINE [Concomitant]
     Indication: HYPERTENSION
     Dosage: UNK, 2X/DAY
  7. NORVASC [Concomitant]
     Indication: HYPERTENSION
     Dosage: UNK, 2X/DAY

REACTIONS (3)
  - DRUG INEFFECTIVE [None]
  - DRUG ADMINISTRATION ERROR [None]
  - INSOMNIA [None]
